FAERS Safety Report 14022136 (Version 1)
Quarter: 2017Q3

REPORT INFORMATION
  Report Type: Spontaneous
  Country: US (occurrence: None)
  Receive Date: 20170928
  Receipt Date: 20170928
  Transmission Date: 20171128
  Serious: Yes (Hospitalization)
  Sender: FDA-Public Use
  Company Number: None

PATIENT
  Age: 50 Year
  Sex: Female

DRUGS (1)
  1. CAPECITABINE TAB 500 MG BER [Suspect]
     Active Substance: CAPECITABINE

REACTIONS (5)
  - Gallbladder enlargement [None]
  - Erythema [None]
  - Tenderness [None]
  - Splenomegaly [None]
  - Diarrhoea [None]

NARRATIVE: CASE EVENT DATE: 20170928
